FAERS Safety Report 20313095 (Version 1)
Quarter: 2022Q1

REPORT INFORMATION
  Report Type: Report from Study
  Country: US (occurrence: US)
  Receive Date: 20220109
  Receipt Date: 20220109
  Transmission Date: 20220423
  Serious: Yes (Hospitalization)
  Sender: FDA-Public Use
  Company Number: US-SERVIER-S21014633

PATIENT

DRUGS (1)
  1. TIBSOVO [Suspect]
     Active Substance: IVOSIDENIB
     Indication: Biliary neoplasm
     Dosage: 500 MG DAILY
     Route: 048
     Dates: start: 20211215

REACTIONS (4)
  - Bone pain [Recovering/Resolving]
  - Pain [Recovering/Resolving]
  - Blood pressure increased [Recovering/Resolving]
  - Eating disorder [Unknown]

NARRATIVE: CASE EVENT DATE: 20211201
